FAERS Safety Report 25553077 (Version 1)
Quarter: 2025Q3

REPORT INFORMATION
  Report Type: Report from Study
  Country: US (occurrence: US)
  Receive Date: 20250715
  Receipt Date: 20250715
  Transmission Date: 20251020
  Serious: No
  Sender: ACADIA PHARMACEUTICALS
  Company Number: US-ACADIA PHARMACEUTICALS INC.-ACA-2025-PIM-008173

PATIENT
  Age: 57 Year
  Sex: Male

DRUGS (23)
  1. NUPLAZID [Suspect]
     Active Substance: PIMAVANSERIN TARTRATE
     Indication: Parkinson^s disease psychosis
     Dosage: 10 MILLIGRAM, QD
     Route: 048
     Dates: start: 20240111
  2. NOVOLOG [Concomitant]
     Active Substance: INSULIN ASPART
  3. OZEMPIC [Concomitant]
     Active Substance: SEMAGLUTIDE
  4. FLUDROCORTISONE [Concomitant]
     Active Substance: FLUDROCORTISONE
  5. LANTUS [Concomitant]
     Active Substance: INSULIN GLARGINE
  6. MIRTAZAPINE [Concomitant]
     Active Substance: MIRTAZAPINE
  7. BUSPAR [Concomitant]
     Active Substance: BUSPIRONE HYDROCHLORIDE
  8. CARAFATE [Concomitant]
     Active Substance: SUCRALFATE
  9. PREGABALIN [Concomitant]
     Active Substance: PREGABALIN
  10. DULOXETINE [Concomitant]
     Active Substance: DULOXETINE
  11. FAMOTIDINE [Concomitant]
     Active Substance: FAMOTIDINE
  12. HYDROXYZINE [Concomitant]
     Active Substance: HYDROXYZINE HYDROCHLORIDE
  13. ALBUTEROL [Concomitant]
     Active Substance: ALBUTEROL
  14. ONDANSETRON [Concomitant]
     Active Substance: ONDANSETRON
  15. METFORMIN [Concomitant]
     Active Substance: METFORMIN HYDROCHLORIDE
  16. DIGOXIN [Concomitant]
     Active Substance: DIGOXIN
  17. AUVELITY [Concomitant]
     Active Substance: BUPROPION HYDROCHLORIDE\DEXTROMETHORPHAN HYDROBROMIDE
  18. LISINOPRIL [Concomitant]
     Active Substance: LISINOPRIL
  19. MIDODRINE [Concomitant]
     Active Substance: MIDODRINE
  20. ATORVASTATIN [Concomitant]
     Active Substance: ATORVASTATIN
  21. SINEMET [Concomitant]
     Active Substance: CARBIDOPA\LEVODOPA
  22. ARICEPT [Concomitant]
     Active Substance: DONEPEZIL HYDROCHLORIDE
  23. DROXIDOPA [Concomitant]
     Active Substance: DROXIDOPA

REACTIONS (1)
  - Product use issue [Unknown]

NARRATIVE: CASE EVENT DATE: 20250708
